FAERS Safety Report 12653046 (Version 3)
Quarter: 2016Q3

REPORT INFORMATION
  Report Type: Spontaneous
  Country: US (occurrence: US)
  Receive Date: 20160815
  Receipt Date: 20160915
  Transmission Date: 20161109
  Serious: Yes (Other)
  Sender: FDA-Public Use
  Company Number: US-PFIZER INC-2016385321

PATIENT
  Age: 82 Year
  Sex: Male
  Weight: 75 kg

DRUGS (3)
  1. XELJANZ XR [Suspect]
     Active Substance: TOFACITINIB CITRATE
     Indication: RHEUMATOID ARTHRITIS
     Dosage: 11 MG
     Dates: start: 20160622, end: 20160804
  2. TESTOSTERONE CIPIONATE [Suspect]
     Active Substance: TESTOSTERONE
     Dosage: UNK
     Route: 062
     Dates: end: 20160730
  3. METHOTREXATE SODIUM. [Suspect]
     Active Substance: METHOTREXATE SODIUM
     Dosage: 0.8 ML
     Dates: end: 20160725

REACTIONS (9)
  - Musculoskeletal stiffness [Unknown]
  - Arthralgia [Unknown]
  - Burning sensation [Unknown]
  - Haematocrit decreased [Unknown]
  - Peripheral swelling [Unknown]
  - Atrial fibrillation [Unknown]
  - Hyperaesthesia [Unknown]
  - Herpes zoster [Recovered/Resolved]
  - Condition aggravated [Unknown]

NARRATIVE: CASE EVENT DATE: 20160801
